FAERS Safety Report 5066075-4 (Version None)
Quarter: 2006Q3

REPORT INFORMATION
  Report Type: 
  Country: None (occurrence: None)
  Receive Date: 20060726
  Receipt Date: 20060723
  Transmission Date: 20061208
  Serious: Yes (Other)
  Sender: FDA-Public Use
  Company Number: 2006089845

PATIENT
  Sex: 0

DRUGS (1)
  1. LISTERINE (MENTHOL, METHYL SALICYLATE, EUCALYPTOL, THYMOL) [Suspect]
     Dosage: 2 BOTTLES ONCE, ORAL
     Route: 048
     Dates: start: 20060723, end: 20060723

REACTIONS (1)
  - INTENTIONAL DRUG MISUSE [None]
